FAERS Safety Report 13997930 (Version 7)
Quarter: 2022Q1

REPORT INFORMATION
  Report Type: Report from Study
  Country: HU (occurrence: HU)
  Receive Date: 20170921
  Receipt Date: 20220216
  Transmission Date: 20220423
  Serious: Yes (Hospitalization)
  Sender: FDA-Public Use
  Company Number: HU-ABBVIE-17P-076-2101213-00

PATIENT
  Age: 64 Year
  Sex: Male
  Weight: 77.9 kg

DRUGS (25)
  1. VENETOCLAX [Suspect]
     Active Substance: VENETOCLAX
     Indication: Chronic lymphocytic leukaemia
     Route: 048
     Dates: start: 20170821, end: 20170827
  2. VENETOCLAX [Suspect]
     Active Substance: VENETOCLAX
     Route: 048
     Dates: start: 20170829, end: 20170903
  3. VENETOCLAX [Suspect]
     Active Substance: VENETOCLAX
     Route: 048
     Dates: start: 20170904, end: 20170910
  4. VENETOCLAX [Suspect]
     Active Substance: VENETOCLAX
     Route: 048
     Dates: start: 20170914, end: 20170920
  5. VENETOCLAX [Suspect]
     Active Substance: VENETOCLAX
     Route: 048
     Dates: start: 20170928
  6. RASBURICASE [Concomitant]
     Active Substance: RASBURICASE
     Indication: Tumour lysis syndrome
     Route: 042
     Dates: start: 20170821, end: 20170821
  7. RASBURICASE [Concomitant]
     Active Substance: RASBURICASE
     Indication: Prophylaxis
     Route: 042
     Dates: start: 20170828, end: 20170828
  8. FEBUXOSTAT [Concomitant]
     Active Substance: FEBUXOSTAT
     Indication: Tumour lysis syndrome
     Route: 048
     Dates: start: 2016
  9. FEBUXOSTAT [Concomitant]
     Active Substance: FEBUXOSTAT
     Indication: Prophylaxis
  10. SODIUM CHLORIDE [Concomitant]
     Active Substance: SODIUM CHLORIDE
     Indication: Tumour lysis syndrome
     Route: 042
     Dates: start: 20170821, end: 20170822
  11. SODIUM CHLORIDE [Concomitant]
     Active Substance: SODIUM CHLORIDE
     Indication: Prophylaxis
  12. ORAL FLUIDS [Concomitant]
     Indication: Tumour lysis syndrome
     Route: 048
     Dates: start: 20170819, end: 20170829
  13. ORAL FLUIDS [Concomitant]
     Indication: Prophylaxis
     Route: 048
     Dates: start: 20170830, end: 20171004
  14. ORAL FLUIDS [Concomitant]
     Route: 048
     Dates: start: 20171005
  15. NORMAL SALINE SOLUTION (0.9% SODIUM CHLORIDE+ 40 ML CALCIUM CHLORIDE [Concomitant]
     Indication: Tumour lysis syndrome
     Route: 042
     Dates: start: 20170828, end: 20170829
  16. NORMAL SALINE SOLUTION (0.9% SODIUM CHLORIDE+ 40 ML CALCIUM CHLORIDE [Concomitant]
     Indication: Prophylaxis
  17. VITAMIN D3 [Concomitant]
     Active Substance: CHOLECALCIFEROL
     Indication: Hypocalcaemia
     Route: 048
     Dates: start: 20170824
  18. VITAMIN D3 [Concomitant]
     Active Substance: CHOLECALCIFEROL
     Indication: Prophylaxis
  19. METOPROLOL SUCCINATE [Concomitant]
     Active Substance: METOPROLOL SUCCINATE
     Indication: Hypertension
     Route: 048
     Dates: start: 2012
  20. PERINDOPRIL ARGININE [Concomitant]
     Active Substance: PERINDOPRIL ARGININE
     Indication: Hypertension
     Route: 048
     Dates: start: 2012
  21. CALCIUM CARBONATE [Concomitant]
     Active Substance: CALCIUM CARBONATE
     Indication: Prophylaxis
     Route: 048
     Dates: start: 20170821
  22. CALCIUM CARBONATE [Concomitant]
     Active Substance: CALCIUM CARBONATE
     Indication: Hypocalcaemia
  23. FEBUXOSTAT [Concomitant]
     Active Substance: FEBUXOSTAT
     Indication: Prophylaxis
     Route: 048
     Dates: start: 2016
  24. FEBUXOSTAT [Concomitant]
     Active Substance: FEBUXOSTAT
     Indication: Tumour lysis syndrome
  25. FILGRASTIM [Concomitant]
     Active Substance: FILGRASTIM
     Indication: Neutropenia
     Dosage: MIU
     Route: 058
     Dates: start: 20170911, end: 20170913

REACTIONS (2)
  - Sepsis [Recovered/Resolved]
  - Thrombocytopenia [Recovered/Resolved]

NARRATIVE: CASE EVENT DATE: 20170911
